FAERS Safety Report 23643116 (Version 8)
Quarter: 2024Q2

REPORT INFORMATION
  Report Type: Spontaneous
  Country: US (occurrence: US)
  Receive Date: 20240318
  Receipt Date: 20240607
  Transmission Date: 20240716
  Serious: Yes (Hospitalization)
  Sender: FDA-Public Use
  Company Number: US-PFIZER INC-PV202400036057

PATIENT
  Age: 56 Year
  Sex: Female

DRUGS (2)
  1. IBRANCE [Suspect]
     Active Substance: PALBOCICLIB
     Dosage: UNK
     Dates: start: 20240228
  2. LETROZOLE [Suspect]
     Active Substance: LETROZOLE
     Dosage: UNK

REACTIONS (14)
  - Constipation [Unknown]
  - Pain [Unknown]
  - Nail discolouration [Unknown]
  - Hyperhidrosis [Unknown]
  - Chest pain [Unknown]
  - Dehydration [Unknown]
  - Weight decreased [Unknown]
  - Dizziness [Unknown]
  - Proctalgia [Unknown]
  - Hot flush [Unknown]
  - Onychomycosis [Unknown]
  - Alopecia [Not Recovered/Not Resolved]
  - Decreased appetite [Unknown]
  - Diarrhoea [Unknown]

NARRATIVE: CASE EVENT DATE: 20240101
